FAERS Safety Report 6055595-1 (Version None)
Quarter: 2009Q1

REPORT INFORMATION
  Report Type: 
  Country: None (occurrence: None)
  Receive Date: 20090128
  Receipt Date: 20090120
  Transmission Date: 20090719
  Serious: Yes (Hospitalization, Other)
  Sender: FDA-Public Use
  Company Number: BR-PFIZER INC-2008160752

PATIENT

DRUGS (2)
  1. EPELIN [Suspect]
     Indication: HEAD INJURY
     Dosage: 100 MG, 2X/DAY
     Route: 048
     Dates: start: 20000901
  2. PRIMIDONE [Suspect]

REACTIONS (4)
  - CONVULSION [None]
  - CYSTITIS [None]
  - DRUG INEFFECTIVE [None]
  - SOMNOLENCE [None]
